FAERS Safety Report 10753167 (Version 1)
Quarter: 2015Q1

REPORT INFORMATION
  Report Type: Spontaneous
  Country: US (occurrence: US)
  Receive Date: 20150130
  Receipt Date: 20150130
  Transmission Date: 20150721
  Serious: No
  Sender: FDA-Public Use
  Company Number: US-ELI_LILLY_AND_COMPANY-US201501005375

PATIENT
  Sex: Male

DRUGS (1)
  1. FORTEO [Suspect]
     Active Substance: TERIPARATIDE
     Indication: SPINAL COLUMN STENOSIS
     Dosage: UNK
     Dates: start: 201310

REACTIONS (3)
  - Overdose [Unknown]
  - Off label use [Unknown]
  - Medication error [Unknown]
